FAERS Safety Report 6265996-4 (Version None)
Quarter: 2009Q3

REPORT INFORMATION
  Report Type: 
  Country: None (occurrence: None)
  Receive Date: 20090708
  Receipt Date: 20090623
  Transmission Date: 20100115
  Serious: Yes (Hospitalization)
  Sender: FDA-Public Use
  Company Number: 001187

PATIENT
  Sex: Male
  Weight: 68 kg

DRUGS (7)
  1. NEUPRO [Suspect]
     Indication: PARKINSON'S DISEASE
     Dosage: 4 MG QD TRANSDERMAL
     Route: 062
     Dates: start: 20070620, end: 20070923
  2. NEUPRO [Suspect]
     Indication: PARKINSON'S DISEASE
     Dosage: 4 MG QD TRANSDERMAL
     Route: 062
     Dates: start: 20070924
  3. AMANTADINE HCL [Concomitant]
  4. SIFROL [Concomitant]
  5. NIFEDIPINE [Concomitant]
  6. LOCOL [Concomitant]
  7. ISCOVER [Concomitant]

REACTIONS (1)
  - ILEUS [None]
